FAERS Safety Report 5944112-X (Version None)
Quarter: 2008Q4

REPORT INFORMATION
  Report Type: 
  Country: None (occurrence: None)
  Receive Date: 20081106
  Receipt Date: 20081031
  Transmission Date: 20090506
  Serious: Yes (Death)
  Sender: FDA-Public Use
  Company Number: GR-AMGEN-UK313521

PATIENT
  Age: 77 Year
  Sex: Male
  Weight: 47 kg

DRUGS (11)
  1. ARANESP [Suspect]
     Indication: RENAL FAILURE CHRONIC
     Route: 065
     Dates: end: 20080226
  2. SEVELAMER [Concomitant]
  3. OMEPRAZOLE [Concomitant]
  4. ISOSORBIDE MONONITRATE [Concomitant]
  5. NEBIVOLOL HCL [Concomitant]
  6. AMLODIPINE [Concomitant]
  7. PREDNISOLONE [Concomitant]
     Dates: start: 20071009
  8. PREDNISOLONE [Concomitant]
     Dates: start: 20080104, end: 20080309
  9. SUCRALFATE [Concomitant]
     Dates: start: 20070301
  10. NEUROBION [Concomitant]
  11. LEVOCARNITINE [Concomitant]

REACTIONS (2)
  - CACHEXIA [None]
  - SEPTIC SHOCK [None]
